FAERS Safety Report 14316570 (Version 2)
Quarter: 2018Q1

REPORT INFORMATION
  Report Type: Spontaneous
  Country: CN (occurrence: CN)
  Receive Date: 20171222
  Receipt Date: 20180105
  Transmission Date: 20180509
  Serious: Yes (Death)
  Sender: FDA-Public Use
  Company Number: CN-ASTRAZENECA-2017SF29413

PATIENT

DRUGS (3)
  1. ONGLYZA [Suspect]
     Active Substance: SAXAGLIPTIN HYDROCHLORIDE
     Indication: DIABETES MELLITUS
     Route: 048
  2. PIOGLITAZONE. [Concomitant]
     Active Substance: PIOGLITAZONE
     Indication: DIABETES MELLITUS
  3. GLIPIZIDE. [Concomitant]
     Active Substance: GLIPIZIDE
     Indication: DIABETES MELLITUS

REACTIONS (1)
  - Acute hepatic failure [Fatal]
